FAERS Safety Report 20758220 (Version 2)
Quarter: 2022Q2

REPORT INFORMATION
  Report Type: Other
  Country: CA (occurrence: CA)
  Receive Date: 20220427
  Receipt Date: 20220506
  Transmission Date: 20220721
  Serious: Yes (Hospitalization)
  Sender: FDA-Public Use
  Company Number: CA-NAPPMUNDI-GBR-2022-0097270

PATIENT
  Age: 35 Year
  Sex: Female

DRUGS (56)
  1. MORPHINE SULFATE [Suspect]
     Active Substance: MORPHINE SULFATE
     Indication: Postoperative analgesia
     Dosage: 600 MILLIGRAM, BID
     Route: 048
  2. MORPHINE SULFATE [Suspect]
     Active Substance: MORPHINE SULFATE
     Indication: Drug use disorder
     Dosage: 1490 MILLIGRAM, DAILY
     Route: 048
  3. MORPHINE SULFATE [Suspect]
     Active Substance: MORPHINE SULFATE
     Indication: Procedural pain
     Dosage: 1340 MILLIGRAM, DAILY
     Route: 048
  4. MORPHINE SULFATE [Suspect]
     Active Substance: MORPHINE SULFATE
     Dosage: 700 MILLIGRAM, DAILY
     Route: 048
  5. MORPHINE SULFATE [Suspect]
     Active Substance: MORPHINE SULFATE
     Dosage: 600 MILLIGRAM, DAILY
     Route: 048
  6. MORPHINE SULFATE [Suspect]
     Active Substance: MORPHINE SULFATE
     Dosage: 920 MILLIGRAM, DAILY
     Route: 048
  7. MORPHINE SULFATE [Suspect]
     Active Substance: MORPHINE SULFATE
     Dosage: 150 MILLIGRAM, Q6H
     Route: 048
  8. MORPHINE SULFATE [Suspect]
     Active Substance: MORPHINE SULFATE
     Dosage: 800 MILLIGRAM, DAILY
     Route: 048
  9. MORPHINE SULFATE [Suspect]
     Active Substance: MORPHINE SULFATE
     Dosage: 150 MILLIGRAM, Q4H
     Route: 048
  10. MORPHINE SULFATE [Suspect]
     Active Substance: MORPHINE SULFATE
     Dosage: 1440 MILLIGRAM, DAILY
     Route: 048
  11. MORPHINE SULFATE [Suspect]
     Active Substance: MORPHINE SULFATE
     Dosage: 640 MILLIGRAM, DAILY
     Route: 048
  12. MORPHINE SULFATE [Suspect]
     Active Substance: MORPHINE SULFATE
     Dosage: 1020 MILLIGRAM, DAILY
     Route: 048
  13. MORPHINE SULFATE [Suspect]
     Active Substance: MORPHINE SULFATE
     Dosage: 680 MILLIGRAM, DAILY
     Route: 048
  14. MORPHINE SULFATE [Suspect]
     Active Substance: MORPHINE SULFATE
     Dosage: 1290 MILLIGRAM, DAILY
     Route: 048
  15. MORPHINE SULFATE [Suspect]
     Active Substance: MORPHINE SULFATE
     Dosage: UNK, EVERY 5 DAYSUNK
     Route: 048
  16. MORPHINE SULFATE [Suspect]
     Active Substance: MORPHINE SULFATE
     Dosage: 150 UNK, QID
     Route: 048
  17. HYDROMORPHONE HYDROCHLORIDE [Suspect]
     Active Substance: HYDROMORPHONE HYDROCHLORIDE
     Indication: Drug use disorder
     Dosage: UNK
     Route: 065
  18. HYDROMORPHONE HYDROCHLORIDE [Suspect]
     Active Substance: HYDROMORPHONE HYDROCHLORIDE
     Dosage: UNK
     Route: 048
  19. OXYCODONE HYDROCHLORIDE [Suspect]
     Active Substance: OXYCODONE HYDROCHLORIDE
     Indication: Drug use disorder
     Dosage: UNK
     Route: 065
  20. CARFENTANIL [Suspect]
     Active Substance: CARFENTANIL
     Indication: Pain
     Dosage: UNK
     Route: 045
  21. METHADONE [Suspect]
     Active Substance: METHADONE HYDROCHLORIDE
     Indication: Drug use disorder
     Dosage: UNK, BID
     Route: 065
  22. METHADONE [Suspect]
     Active Substance: METHADONE HYDROCHLORIDE
     Dosage: UNK, EVERY 5 DAYS
     Route: 065
  23. METHADONE [Suspect]
     Active Substance: METHADONE HYDROCHLORIDE
     Dosage: 140 MILLIGRAM, BID
     Route: 065
  24. METHADONE [Suspect]
     Active Substance: METHADONE HYDROCHLORIDE
     Dosage: 170 MILLIGRAM, BID
     Route: 065
  25. METHADONE [Suspect]
     Active Substance: METHADONE HYDROCHLORIDE
     Dosage: 30 MILLIGRAM
     Route: 065
  26. METHADONE [Suspect]
     Active Substance: METHADONE HYDROCHLORIDE
     Dosage: 170 MILLIGRAM, DAILY
     Route: 048
  27. METHADONE [Suspect]
     Active Substance: METHADONE HYDROCHLORIDE
     Dosage: 142 MILLIGRAM, DAILY
     Route: 048
  28. METHADONE [Suspect]
     Active Substance: METHADONE HYDROCHLORIDE
     Dosage: 170 MILLIGRAM, BID
     Route: 048
  29. METHADONE [Suspect]
     Active Substance: METHADONE HYDROCHLORIDE
     Dosage: 160 MILLIGRAM, DAILY
     Route: 048
  30. METHADONE [Suspect]
     Active Substance: METHADONE HYDROCHLORIDE
     Dosage: 140 MILLIGRAM, BID
     Route: 048
  31. METHADONE [Suspect]
     Active Substance: METHADONE HYDROCHLORIDE
     Dosage: 143 MILLIGRAM, BID
     Route: 048
  32. METHADONE [Suspect]
     Active Substance: METHADONE HYDROCHLORIDE
     Dosage: UNK, BID
     Route: 065
  33. METHADONE [Suspect]
     Active Substance: METHADONE HYDROCHLORIDE
     Dosage: UNK, EVERY 5 DAYS
     Route: 065
  34. METHADONE [Suspect]
     Active Substance: METHADONE HYDROCHLORIDE
     Dosage: 140 MILLIGRAM, BID
     Route: 065
  35. METHADONE [Suspect]
     Active Substance: METHADONE HYDROCHLORIDE
     Dosage: 170 MILLIGRAM, BID
     Route: 065
  36. METHADONE [Suspect]
     Active Substance: METHADONE HYDROCHLORIDE
     Dosage: 30 MILLIGRAM
     Route: 065
  37. METHADONE [Suspect]
     Active Substance: METHADONE HYDROCHLORIDE
     Dosage: 170 MILLIGRAM, DAILY
     Route: 048
  38. METHADONE [Suspect]
     Active Substance: METHADONE HYDROCHLORIDE
     Dosage: 142 MILLIGRAM, DAILY
     Route: 048
  39. METHADONE [Suspect]
     Active Substance: METHADONE HYDROCHLORIDE
     Dosage: 170 MILLIGRAM, BID
     Route: 048
  40. METHADONE [Suspect]
     Active Substance: METHADONE HYDROCHLORIDE
     Dosage: 160 MILLIGRAM, DAILY
     Route: 048
  41. METHADONE [Suspect]
     Active Substance: METHADONE HYDROCHLORIDE
     Dosage: 140 MILLIGRAM, BID
     Route: 048
  42. METHADONE [Suspect]
     Active Substance: METHADONE HYDROCHLORIDE
     Dosage: 143 MILLIGRAM, BID
     Route: 048
  43. MORPHINE [Suspect]
     Active Substance: MORPHINE
     Indication: Procedural pain
     Dosage: 1490 MILLIGRAM, DAILY
     Route: 048
  44. MORPHINE [Suspect]
     Active Substance: MORPHINE
     Indication: Drug use disorder
     Dosage: 1340 MILLIGRAM, DAILY
     Route: 048
  45. MORPHINE [Suspect]
     Active Substance: MORPHINE
     Dosage: 600 MILLIGRAM, BID
     Route: 048
  46. MORPHINE [Suspect]
     Active Substance: MORPHINE
     Dosage: 700 MILLIGRAM, DAILY
     Route: 048
  47. MORPHINE [Suspect]
     Active Substance: MORPHINE
     Dosage: 600 MILLIGRAM, DAILY
     Route: 048
  48. MORPHINE [Suspect]
     Active Substance: MORPHINE
     Dosage: 920 MILLIGRAM, DAILY
     Route: 048
  49. MORPHINE [Suspect]
     Active Substance: MORPHINE
     Dosage: 150 MILLIGRAM, Q6H
     Route: 048
  50. MORPHINE [Suspect]
     Active Substance: MORPHINE
     Dosage: 800 MILLIGRAM, DAILY
     Route: 048
  51. MORPHINE [Suspect]
     Active Substance: MORPHINE
     Dosage: 150 MILLIGRAM, Q4H
     Route: 048
  52. MORPHINE [Suspect]
     Active Substance: MORPHINE
     Dosage: 1440 MILLIGRAM, DAILY
     Route: 048
  53. MORPHINE [Suspect]
     Active Substance: MORPHINE
     Dosage: 640 MILLIGRAM, DAILY
     Route: 048
  54. MORPHINE [Suspect]
     Active Substance: MORPHINE
     Dosage: 1020 MILLIGRAM, DAILY
     Route: 048
  55. MORPHINE [Suspect]
     Active Substance: MORPHINE
     Dosage: 680 MILLIGRAM, DAILY
     Route: 048
  56. MORPHINE [Suspect]
     Active Substance: MORPHINE
     Dosage: 1290 MILLIGRAM, DAILY
     Route: 048

REACTIONS (12)
  - Maternal exposure during pregnancy [Not Recovered/Not Resolved]
  - Constipation [Not Recovered/Not Resolved]
  - Live birth [Not Recovered/Not Resolved]
  - Drug dependence [Not Recovered/Not Resolved]
  - Drug tolerance increased [Not Recovered/Not Resolved]
  - Drug withdrawal syndrome [Not Recovered/Not Resolved]
  - Hyperhidrosis [Not Recovered/Not Resolved]
  - Intentional product misuse [Not Recovered/Not Resolved]
  - Overdose [Not Recovered/Not Resolved]
  - Rhinorrhoea [Not Recovered/Not Resolved]
  - Tachycardia [Not Recovered/Not Resolved]
  - Therapy non-responder [Not Recovered/Not Resolved]
